FAERS Safety Report 19956408 (Version 2)
Quarter: 2021Q4

REPORT INFORMATION
  Report Type: Spontaneous
  Country: CH (occurrence: CH)
  Receive Date: 20211014
  Receipt Date: 20211022
  Transmission Date: 20220304
  Serious: Yes (Death, Life-Threatening, Hospitalization)
  Sender: FDA-Public Use
  Company Number: CH-TEVA-2021-CH-1963826

PATIENT
  Age: 70 Year
  Sex: Male

DRUGS (23)
  1. SULFAMETHOXAZOLE\TRIMETHOPRIM [Interacting]
     Active Substance: SULFAMETHOXAZOLE\TRIMETHOPRIM
     Indication: Product used for unknown indication
     Dosage: SULFAMETHOXAZOLE 800MG, TRIMETHOPRIM 160MG 3 DAYS PER WEEK
     Route: 065
  2. DOBUTAMINE [Suspect]
     Active Substance: DOBUTAMINE HYDROCHLORIDE
     Indication: Haemodynamic instability
     Route: 065
  3. LAMIVUDINE [Interacting]
     Active Substance: LAMIVUDINE
     Indication: HIV infection
     Dosage: 150 MILLIGRAM DAILY; HIGH-DOSE
     Route: 065
  4. LAMIVUDINE [Interacting]
     Active Substance: LAMIVUDINE
     Dosage: 100 MILLIGRAM DAILY;
     Route: 065
  5. PIPERACILLIN SODIUM\TAZOBACTAM SODIUM [Suspect]
     Active Substance: PIPERACILLIN SODIUM\TAZOBACTAM SODIUM
     Indication: Evidence based treatment
     Route: 065
  6. PIPERACILLIN SODIUM\TAZOBACTAM SODIUM [Suspect]
     Active Substance: PIPERACILLIN SODIUM\TAZOBACTAM SODIUM
     Indication: Antibiotic therapy
  7. THIAMINE [Suspect]
     Active Substance: THIAMINE
     Indication: Haemodynamic instability
     Dosage: BOLUS
     Route: 065
  8. VALGANCICLOVIR [Suspect]
     Active Substance: VALGANCICLOVIR
     Indication: HIV infection
     Dosage: 450 MILLIGRAM DAILY;
     Route: 065
  9. ABACAVIR [Suspect]
     Active Substance: ABACAVIR
     Indication: HIV infection
     Dosage: 600 MILLIGRAM DAILY;
     Route: 065
  10. TACROLIMUS [Suspect]
     Active Substance: TACROLIMUS
     Indication: Immunosuppressant drug therapy
     Dosage: 7 MILLIGRAM DAILY;
     Route: 065
  11. MYCOPHENOLIC ACID [Suspect]
     Active Substance: MYCOPHENOLIC ACID
     Indication: Immunosuppressant drug therapy
     Dosage: 1440 MILLIGRAM DAILY;
     Route: 065
  12. PREDNISONE [Suspect]
     Active Substance: PREDNISONE
     Indication: Immunosuppressant drug therapy
     Dosage: 10 MILLIGRAM DAILY;
     Route: 065
  13. NOREPINEPHRINE [Suspect]
     Active Substance: NOREPINEPHRINE
     Indication: Haemodynamic instability
     Dosage: 2-4 MICROGRAM PER MINUTE
     Route: 065
  14. NOREPINEPHRINE [Suspect]
     Active Substance: NOREPINEPHRINE
     Dosage: 17280 MICROGRAM DAILY;
     Route: 065
  15. NOREPINEPHRINE [Suspect]
     Active Substance: NOREPINEPHRINE
     Dosage: 72000 MICROGRAM DAILY;
     Route: 065
  16. ARGIPRESSIN [Suspect]
     Active Substance: ARGIPRESSIN
     Indication: Haemodynamic instability
     Dosage: 0.03 UNITS PER MINUTE
     Route: 065
  17. ILOPROST [Suspect]
     Active Substance: ILOPROST
     Indication: Haemodynamic instability
     Route: 065
  18. EPINEPHRINE [Suspect]
     Active Substance: EPINEPHRINE
     Indication: Haemodynamic instability
     Route: 065
  19. Doltugravir [Concomitant]
     Indication: HIV infection
     Dosage: 50 MILLIGRAM DAILY;
     Route: 065
  20. IMIPENEM [Concomitant]
     Active Substance: IMIPENEM
     Indication: Evidence based treatment
     Route: 065
  21. IMIPENEM [Concomitant]
     Active Substance: IMIPENEM
     Indication: Antibiotic therapy
  22. CLINDAMYCIN [Concomitant]
     Active Substance: CLINDAMYCIN
     Indication: Evidence based treatment
     Route: 065
  23. CLINDAMYCIN [Concomitant]
     Active Substance: CLINDAMYCIN
     Indication: Antibiotic therapy

REACTIONS (19)
  - Sepsis [Fatal]
  - Hepatic failure [Fatal]
  - Multiple organ dysfunction syndrome [Fatal]
  - Lactic acidosis [Fatal]
  - Hyperlactacidaemia [Fatal]
  - Renal failure [Fatal]
  - Drug eruption [Unknown]
  - Thrombocytopenia [Unknown]
  - Leukopenia [Recovering/Resolving]
  - Renal impairment [Not Recovered/Not Resolved]
  - Escherichia infection [Not Recovered/Not Resolved]
  - Pseudomonas infection [Not Recovered/Not Resolved]
  - Haemodynamic instability [Not Recovered/Not Resolved]
  - Hypoglycaemia [Unknown]
  - Coagulopathy [Unknown]
  - Skin disorder [Unknown]
  - Toxicity to various agents [Unknown]
  - Drug interaction [Unknown]
  - Drug ineffective [Unknown]
